FAERS Safety Report 9842758 (Version 1)
Quarter: 2013Q4

REPORT INFORMATION
  Report Type: Spontaneous
  Country: US (occurrence: None)
  Receive Date: 20131219
  Receipt Date: 20131219
  Transmission Date: 20140711
  Serious: Yes (Hospitalization)
  Sender: FDA-Public Use
  Company Number: 163-20785-13094024

PATIENT
  Age: 65 Year
  Sex: Female
  Weight: 58.97 kg

DRUGS (7)
  1. THALOMID (THALIDOMIDE) (CAPSULES) [Suspect]
     Indication: PLASMA CELL MYELOMA
     Dosage: 50 MG, 1 IN 1 D, PO
     Route: 048
     Dates: start: 20130425
  2. SYNTHROID (LEVOTHYROXINE SODIUM) (UNKNOWN) [Concomitant]
  3. PROTONIX (UNKNOWN) [Concomitant]
  4. CYMBALTA (DULOXETINE HYDROCHLORIDE) (UNKNOWN) [Concomitant]
  5. AMBIEN (ZOLPIDEM TARTRATE) (UNKNOWN) [Concomitant]
  6. ALBUTEROL (SALBUTAMOL) (INHALANT) [Concomitant]
  7. VITAMIN B COMPLEX C (PABRINEX) (UNKNOWN) [Concomitant]

REACTIONS (1)
  - Anaemia [None]
